FAERS Safety Report 7632076-2 (Version None)
Quarter: 2011Q3

REPORT INFORMATION
  Report Type: 
  Country: None (occurrence: None)
  Receive Date: 20110701
  Receipt Date: 20110415
  Transmission Date: 20111222
  Serious: Yes (Hospitalization)
  Sender: FDA-Public Use
  Company Number: 7054367

PATIENT
  Age: 48 Year
  Sex: Female
  Weight: 68 kg

DRUGS (6)
  1. BONIVA [Concomitant]
  2. XANAX [Concomitant]
  3. EFFEXOR [Concomitant]
  4. REBIF [Suspect]
     Indication: PRODUCT USED FOR UNKNOWN INDICATION
     Dosage: 44 MCG, 3 IN 1 WK, SUBCUTANEOUS
     Route: 058
     Dates: start: 20030307, end: 20110328
  5. MULTI-VITAMINS [Concomitant]
  6. TIZANIDINE HCL [Concomitant]

REACTIONS (3)
  - PANCREATITIS [None]
  - IMPAIRED HEALING [None]
  - BUNION [None]
